FAERS Safety Report 7462656-9 (Version None)
Quarter: 2011Q2

REPORT INFORMATION
  Report Type: 
  Country: None (occurrence: None)
  Receive Date: 20110506
  Receipt Date: 20110430
  Transmission Date: 20111010
  Serious: Yes (Other)
  Sender: FDA-Public Use
  Company Number: PHHY2011NO36719

PATIENT

DRUGS (1)
  1. RITALIN [Suspect]
     Dosage: UNK

REACTIONS (2)
  - HEPATIC CYST [None]
  - RENAL CYST [None]
